FAERS Safety Report 8341609 (Version 2)
Quarter: 2012Q4

REPORT INFORMATION
  Report Type: Spontaneous
  Country: US (occurrence: None)
  Receive Date: 20111209
  Receipt Date: 20120608
  Transmission Date: 20130627
  Serious: Yes (Hospitalization, Other)
  Sender: FDA-Public Use
  Company Number: TH-2011-00337

PATIENT
  Age: 54 Year
  Sex: Male

DRUGS (4)
  1. EGRIFTA [Suspect]
     Indication: LIPODYSTROPHY ACQUIRED
     Dosage: 1 IN 1 D, SUBCUTANEOUS
     Route: 058
     Dates: start: 201101, end: 201108
  2. EGRIFTA [Suspect]
     Indication: LIPODYSTROPHY ACQUIRED
     Dates: start: 201111, end: 201204
  3. UNSPECIFIED ANTIRETROVIRAL THERAPY [Concomitant]
  4. SEROSTIM [(SOMATROPIN (RDNA ORIGIN) FOR INJECTION)] [Suspect]
     Indication: DRUG USE FOR UNKNOWN INDICATION
     Dates: start: 2009, end: 2011

REACTIONS (6)
  - Mass [None]
  - Weight increased [None]
  - T-lymphocyte count increased [None]
  - Basal cell carcinoma [None]
  - Neoplasm [None]
  - Haemorrhage [None]
